FAERS Safety Report 17435697 (Version 2)
Quarter: 2024Q3

REPORT INFORMATION
  Report Type: Report from Study
  Country: US (occurrence: US)
  Receive Date: 20200219
  Receipt Date: 20240917
  Transmission Date: 20241017
  Serious: Yes (Other)
  Sender: ROCHE
  Company Number: US-ROCHE-2549282

PATIENT
  Age: 46 Year
  Sex: Female
  Weight: 62.6 kg

DRUGS (27)
  1. XOLAIR PFS [Suspect]
     Active Substance: OMALIZUMAB
     Indication: Asthma
     Route: 058
     Dates: start: 201906
  2. XOLAIR PFS [Suspect]
     Active Substance: OMALIZUMAB
     Indication: Hypersensitivity
     Route: 058
     Dates: start: 201906
  3. MONTELUKAST [Concomitant]
     Active Substance: MONTELUKAST SODIUM
     Indication: Asthma
     Route: 048
  4. PYRIDOSTIGMINE [Concomitant]
     Active Substance: PYRIDOSTIGMINE
     Indication: Postural orthostatic tachycardia syndrome
     Dosage: MAY TAKE 4TH DOSE AS NEEDED
     Route: 048
     Dates: start: 2017
  5. FAMOTIDINE [Concomitant]
     Active Substance: FAMOTIDINE
     Indication: Hypersensitivity
     Dosage: ONGOING:YES
     Route: 048
     Dates: start: 2018
  6. FEXOFENADINE [Concomitant]
     Active Substance: FEXOFENADINE HYDROCHLORIDE
     Indication: Hypersensitivity
  7. CETIRIZINE [Concomitant]
     Active Substance: CETIRIZINE HYDROCHLORIDE
     Indication: Hypersensitivity
     Dosage: ONGOING:YES
  8. LEVOCETIRIZINE [Concomitant]
     Active Substance: LEVOCETIRIZINE
     Indication: Hypersensitivity
     Dosage: ONGOING:YES
  9. BUDESONIDE\FORMOTEROL [Concomitant]
     Active Substance: BUDESONIDE\FORMOTEROL
     Indication: Hypersensitivity
     Dosage: ONGOING:YES
     Route: 055
  10. LEVALBUTEROL [Concomitant]
     Active Substance: LEVALBUTEROL
     Indication: Cough
     Dosage: AS NEEDED ;ONGOING: YES
     Route: 055
  11. BUDESONIDE [Concomitant]
     Active Substance: BUDESONIDE
     Indication: Cough
     Dosage: AS NEEDED ;ONGOING: YES
     Route: 055
  12. AZELASTINE HYDROCHLORIDE\FLUTICASONE PROPIONATE [Concomitant]
     Active Substance: AZELASTINE HYDROCHLORIDE\FLUTICASONE PROPIONATE
     Dosage: 2 SPRAYS IN EACH NOSTRIL ;ONGOING: YES
  13. IBUPROFEN [Concomitant]
     Active Substance: IBUPROFEN
     Indication: Pain
     Dosage: AS NEEDED ;ONGOING: YES
  14. VITAMIN D3 [Concomitant]
     Active Substance: CHOLECALCIFEROL
     Dosage: ONGOING:YES
  15. PREDNISONE [Concomitant]
     Active Substance: PREDNISONE
     Indication: Hypersensitivity
     Dosage: AS NEEDED ;ONGOING: YES
     Route: 048
  16. PREDNISONE [Concomitant]
     Active Substance: PREDNISONE
     Indication: Asthma
  17. CROMOLYN SODIUM [Concomitant]
     Active Substance: CROMOLYN SODIUM
     Dosage: 100 MG/5 ML; 2 VIALS FOUR TIMES A DAY
     Route: 048
     Dates: start: 2020
  18. ALLEGRA ALLERGY [Concomitant]
     Active Substance: FEXOFENADINE HYDROCHLORIDE
     Indication: Hypersensitivity
     Dosage: MAY TAKE 3RD TAB AS NEEDED
     Route: 048
     Dates: start: 2016
  19. KETOTIFEN [Concomitant]
     Active Substance: KETOTIFEN
     Route: 048
     Dates: start: 2024
  20. REGLAN [Concomitant]
     Active Substance: METOCLOPRAMIDE HYDROCHLORIDE
     Indication: Nausea
     Dosage: TWICE DAILY AS NEEDED
     Dates: start: 2023
  21. TRELEGY ELLIPTA [Concomitant]
     Active Substance: FLUTICASONE FUROATE\UMECLIDINIUM BROMIDE\VILANTEROL TRIFENATATE
     Indication: Asthma
     Dosage: 200 MCG/62.5 MCG/25 MCG
     Route: 055
     Dates: start: 2024
  22. XOPENEX [Concomitant]
     Active Substance: LEVALBUTEROL HYDROCHLORIDE
     Dates: start: 2015
  23. ALBUTEROL SULFATE [Concomitant]
     Active Substance: ALBUTEROL SULFATE
     Indication: Asthma
     Route: 055
     Dates: start: 2016
  24. BUDESONIDE [Concomitant]
     Active Substance: BUDESONIDE
     Indication: Asthma
     Dosage: AS NEEDED FOR ASTHMA EXACERBATION
     Route: 055
     Dates: start: 2016
  25. LANREOTIDE [Concomitant]
     Active Substance: LANREOTIDE
     Indication: Carcinoid syndrome
     Route: 058
     Dates: start: 2021
  26. OCTREOTIDE ACETATE [Concomitant]
     Active Substance: OCTREOTIDE ACETATE
     Indication: Carcinoid syndrome
     Dosage: 100 MCG/ 0.5 ML AS NEEDED UP TO 4 TIMES A DAY
     Route: 058
  27. ZOFRAN [Concomitant]
     Active Substance: ONDANSETRON HYDROCHLORIDE
     Indication: Nausea
     Route: 048

REACTIONS (4)
  - Dyspnoea [Not Recovered/Not Resolved]
  - Anaphylactic reaction [Recovered/Resolved]
  - Mastocytosis [Not Recovered/Not Resolved]
  - Carcinoid syndrome [Not Recovered/Not Resolved]

NARRATIVE: CASE EVENT DATE: 20200101
